FAERS Safety Report 24670169 (Version 1)
Quarter: 2024Q4

REPORT INFORMATION
  Report Type: Spontaneous
  Country: US (occurrence: None)
  Receive Date: 20241126
  Receipt Date: 20241126
  Transmission Date: 20250115
  Serious: No
  Sender: Public
  Company Number: None

PATIENT
  Sex: 0

DRUGS (1)
  1. LITHIUM [Suspect]
     Active Substance: LITHIUM

REACTIONS (3)
  - Suicidal ideation [None]
  - Mood swings [None]
  - Disturbance in attention [None]
